FAERS Safety Report 8945338 (Version 1)
Quarter: 2012Q4

REPORT INFORMATION
  Report Type: 
  Country: BR (occurrence: BR)
  Receive Date: 20121205
  Receipt Date: 20121205
  Transmission Date: 20130627
  Serious: Yes (Hospitalization)
  Sender: FDA-Public Use
  Company Number: PHHY2012BR110123

PATIENT
  Age: 61 Year
  Sex: Male
  Weight: 80 kg

DRUGS (6)
  1. DIOVAN AMLO FIX [Suspect]
     Indication: HYPERTENSION
     Dosage: 1 DF (320mg vals and 5mg amlo), every night
     Route: 048
     Dates: start: 201102, end: 20120618
  2. RENITEC [Suspect]
     Indication: HYPERTENSION
     Dosage: 1 DF (on morning and at night), BID
     Route: 048
     Dates: start: 20120620, end: 20121123
  3. LIPTOR [Concomitant]
     Indication: BLOOD CHOLESTEROL INCREASED
     Dosage: 20 mg, UNK
     Route: 048
     Dates: start: 20120620
  4. PLAVIX [Concomitant]
     Dosage: 75 mg, UNK
     Route: 048
     Dates: start: 20120620
  5. ATENOL [Concomitant]
     Dosage: 25 mg, UNK
     Route: 048
     Dates: start: 20120620
  6. SOMALGIN [Concomitant]
     Indication: COAGULOPATHY
     Dosage: UNK
     Route: 048
     Dates: start: 20120620

REACTIONS (3)
  - Infarction [Recovered/Resolved]
  - Increased upper airway secretion [Recovered/Resolved]
  - Cough [Recovered/Resolved]
